FAERS Safety Report 26207563 (Version 1)
Quarter: 2025Q4

REPORT INFORMATION
  Report Type: Spontaneous
  Country: EU (occurrence: EU)
  Receive Date: 20251229
  Receipt Date: 20251229
  Transmission Date: 20260117
  Serious: Yes (Hospitalization)
  Sender: TEVA
  Company Number: None

PATIENT
  Age: 69 Year
  Sex: Male
  Weight: 83 kg

DRUGS (2)
  1. PIROXICAM [Interacting]
     Active Substance: PIROXICAM
     Indication: Back pain
     Route: 030
     Dates: start: 20201123, end: 20201126
  2. METFORMIN [Interacting]
     Active Substance: METFORMIN HYDROCHLORIDE
     Indication: Type 2 diabetes mellitus
     Dosage: 850 MG THREE TIMES A DAY
     Route: 048
     Dates: end: 20201129

REACTIONS (3)
  - Lactic acidosis [Recovered/Resolved]
  - Drug interaction [Recovered/Resolved]
  - Drug level above therapeutic [Recovered/Resolved]

NARRATIVE: CASE EVENT DATE: 20201123
